FAERS Safety Report 5017775-3 (Version None)
Quarter: 2006Q2

REPORT INFORMATION
  Report Type: 
  Country: None (occurrence: None)
  Receive Date: 20060530
  Receipt Date: 20050224
  Transmission Date: 20061013
  Serious: Yes (Other)
  Sender: FDA-Public Use
  Company Number: 2005037668

PATIENT
  Age: 81 Year
  Sex: Male

DRUGS (3)
  1. LYRICA [Suspect]
     Indication: NEURALGIA
     Dosage: 150 MG (75 MG, 2 IN 1 D), ORAL
     Route: 048
     Dates: end: 20050207
  2. METAMIZOLE [Concomitant]
  3. TRAMADOL HCL [Concomitant]

REACTIONS (4)
  - CEREBRAL ATROPHY [None]
  - FALL [None]
  - MYOCLONUS [None]
  - SYNCOPE [None]
